FAERS Safety Report 19055737 (Version 1)
Quarter: 2021Q1

REPORT INFORMATION
  Report Type: Spontaneous
  Country: US (occurrence: US)
  Receive Date: 20210324
  Receipt Date: 20210324
  Transmission Date: 20210420
  Serious: Yes (Other)
  Sender: FDA-Public Use
  Company Number: US-TEVA-2021-US-1892433

PATIENT
  Sex: Female

DRUGS (9)
  1. MS CONTIN [Suspect]
     Active Substance: MORPHINE SULFATE
     Route: 065
     Dates: start: 2002
  2. AMPHETAMINE [Suspect]
     Active Substance: AMPHETAMINE
     Route: 065
     Dates: start: 2002
  3. OXYCODONE AND ACETAMINOPHEN [Suspect]
     Active Substance: ACETAMINOPHEN\OXYCODONE HYDROCHLORIDE
     Route: 065
     Dates: start: 2002
  4. OXYCONTIN [Suspect]
     Active Substance: OXYCODONE HYDROCHLORIDE
     Route: 065
     Dates: start: 2004
  5. HYDROCODONE AND ACETAMINOPHEN [Suspect]
     Active Substance: ACETAMINOPHEN\HYDROCODONE
     Route: 065
     Dates: start: 2002
  6. TRAMADOL. [Suspect]
     Active Substance: TRAMADOL
     Route: 065
     Dates: start: 2002
  7. DILAUDID [Suspect]
     Active Substance: HYDROMORPHONE HYDROCHLORIDE
     Route: 065
     Dates: start: 2002
  8. SUBOXONE [Suspect]
     Active Substance: BUPRENORPHINE HYDROCHLORIDE\NALOXONE HYDROCHLORIDE
     Route: 065
     Dates: start: 2002
  9. OXYCODONE [Suspect]
     Active Substance: OXYCODONE
     Dates: start: 2002

REACTIONS (12)
  - General physical health deterioration [Unknown]
  - Hospitalisation [Unknown]
  - Delusion [Unknown]
  - Patient isolation [Unknown]
  - Hallucination, auditory [Unknown]
  - Involuntary commitment [Unknown]
  - Psychotic disorder [Unknown]
  - Paranoia [Unknown]
  - Dependence [Unknown]
  - Functional gastrointestinal disorder [Unknown]
  - Bladder disorder [Unknown]
  - Sleep disorder [Unknown]
